FAERS Safety Report 16586103 (Version 1)
Quarter: 2019Q3

REPORT INFORMATION
  Report Type: Spontaneous
  Country: US (occurrence: US)
  Receive Date: 20190604
  Receipt Date: 20190604
  Transmission Date: 20191004
  Serious: No
  Sender: FDA-Public Use
  Company Number: None

PATIENT
  Age: 72 Year
  Sex: Female

DRUGS (1)
  1. REPATHA [Suspect]
     Active Substance: EVOLOCUMAB
     Indication: HYPERLIPIDAEMIA
     Dosage: ?          OTHER
     Route: 058
     Dates: start: 201812

REACTIONS (4)
  - Red blood cell count decreased [None]
  - Product dose omission [None]
  - Blood iron decreased [None]
  - Platelet count decreased [None]

NARRATIVE: CASE EVENT DATE: 20190604
